FAERS Safety Report 9899474 (Version 2)
Quarter: 2014Q1

REPORT INFORMATION
  Report Type: Spontaneous
  Country: BR (occurrence: BR)
  Receive Date: 20140214
  Receipt Date: 20140218
  Transmission Date: 20141002
  Serious: Yes (Life-Threatening, Hospitalization, Other)
  Sender: FDA-Public Use
  Company Number: BR-JNJFOC-20140208227

PATIENT
  Age: 38 Year
  Sex: Female
  Weight: 46 kg

DRUGS (4)
  1. REMICADE [Suspect]
     Indication: CROHN^S DISEASE
     Route: 042
     Dates: start: 20140113
  2. REMICADE [Suspect]
     Indication: CROHN^S DISEASE
     Route: 042
     Dates: start: 20130818
  3. MESALAZINE [Concomitant]
     Indication: CROHN^S DISEASE
     Route: 065
  4. AZATHIOPRINE [Concomitant]
     Indication: CROHN^S DISEASE
     Route: 065

REACTIONS (2)
  - Enteritis [Unknown]
  - Drug ineffective [Recovered/Resolved]
